FAERS Safety Report 9262866 (Version 2)
Quarter: 2013Q2

REPORT INFORMATION
  Report Type: Spontaneous
  Country: US (occurrence: US)
  Receive Date: 20130430
  Receipt Date: 20130613
  Transmission Date: 20140414
  Serious: Yes (Death)
  Sender: FDA-Public Use
  Company Number: US-PFIZER INC-2013133013

PATIENT
  Age: 52 Year
  Sex: Male

DRUGS (2)
  1. INLYTA [Suspect]
     Indication: RENAL FAILURE CHRONIC
     Dosage: 5 MG, 2X/DAY
     Dates: start: 20121108
  2. INLYTA [Suspect]
     Indication: RENAL FAILURE CHRONIC

REACTIONS (1)
  - Renal failure chronic [Fatal]
